FAERS Safety Report 25710622 (Version 1)
Quarter: 2025Q3

REPORT INFORMATION
  Report Type: Spontaneous
  Country: US (occurrence: None)
  Receive Date: 20250820
  Receipt Date: 20250820
  Transmission Date: 20251020
  Serious: Yes (Hospitalization)
  Sender: FDA-CTU
  Company Number: None

PATIENT
  Age: 41 Year
  Sex: Male
  Weight: 77.4 kg

DRUGS (1)
  1. METRONIDAZOLE [Suspect]
     Active Substance: METRONIDAZOLE
     Indication: Gastric infection
     Dosage: FREQUENCY : EVERY 8 HOURS;?
     Route: 048
     Dates: start: 20250807, end: 20250809

REACTIONS (5)
  - Swollen tongue [None]
  - Pharyngeal swelling [None]
  - Tongue ulceration [None]
  - Tongue discomfort [None]
  - Impaired work ability [None]

NARRATIVE: CASE EVENT DATE: 20250809
